FAERS Safety Report 6073842-7 (Version None)
Quarter: 2009Q1

REPORT INFORMATION
  Report Type: 
  Country: None (occurrence: None)
  Receive Date: 20090209
  Receipt Date: 20090209
  Transmission Date: 20090719
  Serious: Yes (Life-Threatening)
  Sender: FDA-Public Use
  Company Number: None

PATIENT
  Sex: Female

DRUGS (1)
  1. LISINOPRIL [Suspect]
     Indication: HYPERTENSION
     Dosage: 40MG DAILY PO
     Route: 048

REACTIONS (4)
  - LIP SWELLING [None]
  - NO THERAPEUTIC RESPONSE [None]
  - SWELLING FACE [None]
  - THROAT IRRITATION [None]
